FAERS Safety Report 6959725-6 (Version None)
Quarter: 2010Q3

REPORT INFORMATION
  Report Type: 
  Country: None (occurrence: None)
  Receive Date: 20100901
  Receipt Date: 20100825
  Transmission Date: 20110219
  Serious: No
  Sender: FDA-Public Use
  Company Number: US-BIOGENIDEC-2010BI014855

PATIENT
  Age: 51 Year
  Sex: Female

DRUGS (1)
  1. TYSABRI [Suspect]
     Indication: MULTIPLE SCLEROSIS
     Route: 042
     Dates: start: 20071228

REACTIONS (8)
  - ASTHENOPIA [None]
  - POOR VENOUS ACCESS [None]
  - POSTOPERATIVE THROMBOSIS [None]
  - POSTOPERATIVE WOUND INFECTION [None]
  - RESPIRATORY DISORDER [None]
  - SUTURE RELATED COMPLICATION [None]
  - THROMBOSIS [None]
  - VISUAL IMPAIRMENT [None]
